FAERS Safety Report 25664528 (Version 1)
Quarter: 2025Q3

REPORT INFORMATION
  Report Type: Spontaneous
  Country: US (occurrence: US)
  Receive Date: 20250811
  Receipt Date: 20250811
  Transmission Date: 20251020
  Serious: No
  Sender: DR REDDYS
  Company Number: US-DRL-USA-USA/2025/07/011631

PATIENT
  Age: 75 Year
  Sex: Female

DRUGS (10)
  1. CARBIDOPA AND LEVODOPA [Suspect]
     Active Substance: CARBIDOPA\LEVODOPA
     Indication: Abdominal pain
     Dosage: 25/100 MG EVERY 1.5 H
  2. PREGABALIN [Suspect]
     Active Substance: PREGABALIN
     Indication: Abdominal pain
  3. QUETIAPINE [Suspect]
     Active Substance: QUETIAPINE
     Indication: Abdominal pain
  4. OLANZAPINE [Suspect]
     Active Substance: OLANZAPINE
     Indication: Abdominal pain
  5. ACETAMINOPHEN [Concomitant]
     Active Substance: ACETAMINOPHEN
     Indication: Abdominal pain
  6. OXYCODONE [Concomitant]
     Active Substance: OXYCODONE
     Indication: Abdominal pain
  7. BUSPIRONE [Concomitant]
     Active Substance: BUSPIRONE HYDROCHLORIDE
     Indication: Abdominal pain
  8. ALPRAZOLAM [Concomitant]
     Active Substance: ALPRAZOLAM
     Indication: Abdominal pain
  9. DULOXETINE [Concomitant]
     Active Substance: DULOXETINE
     Indication: Abdominal pain
  10. ARIPIPRAZOLE [Concomitant]
     Active Substance: ARIPIPRAZOLE
     Indication: Abdominal pain

REACTIONS (3)
  - Extra dose administered [Unknown]
  - Treatment failure [Unknown]
  - Product use in unapproved indication [Unknown]
